FAERS Safety Report 5684022-9 (Version None)
Quarter: 2008Q1

REPORT INFORMATION
  Report Type: 
  Country: None (occurrence: None)
  Receive Date: 20080328
  Receipt Date: 20080319
  Transmission Date: 20080703
  Serious: Yes (Hospitalization)
  Sender: FDA-Public Use
  Company Number: US-ABBOTT-08P-163-0443452-00

PATIENT
  Age: 46 Year
  Sex: Male
  Weight: 56.75 kg

DRUGS (8)
  1. HUMIRA [Suspect]
     Indication: CROHN'S DISEASE
     Route: 058
     Dates: start: 20070901
  2. HUMIRA [Suspect]
     Route: 058
  3. HUMIRA [Suspect]
     Route: 058
  4. WARFARIN SODIUM [Concomitant]
     Indication: THROMBOSIS
     Route: 048
     Dates: start: 20080316
  5. PREDNISONE TAB [Concomitant]
     Indication: CROHN'S DISEASE
     Route: 048
  6. METHOTREXATE [Concomitant]
     Indication: CROHN'S DISEASE
     Route: 050
  7. VITAMIN CAP [Concomitant]
     Indication: VITAMIN SUPPLEMENTATION
     Route: 048
  8. MEPERIDINE W/PROMETHAZINE [Concomitant]
     Indication: CROHN'S DISEASE
     Dosage: 50/25
     Route: 048

REACTIONS (2)
  - HEADACHE [None]
  - TRANSVERSE SINUS THROMBOSIS [None]
